FAERS Safety Report 18243660 (Version 1)
Quarter: 2020Q3

REPORT INFORMATION
  Report Type: Spontaneous
  Country: FR (occurrence: FR)
  Receive Date: 20200908
  Receipt Date: 20200908
  Transmission Date: 20201103
  Serious: Yes (Other)
  Sender: FDA-Public Use
  Company Number: FR-AMNEAL PHARMACEUTICALS-2020-AMRX-02683

PATIENT

DRUGS (1)
  1. INDOMETHACIN. [Suspect]
     Active Substance: INDOMETHACIN
     Indication: PRODUCT USED FOR UNKNOWN INDICATION
     Dosage: UNK
     Route: 065

REACTIONS (3)
  - Toxic encephalopathy [Recovered/Resolved]
  - Aphasia [Recovered/Resolved]
  - Hemiparesis [Recovered/Resolved]
